FAERS Safety Report 19549142 (Version 1)
Quarter: 2021Q3

REPORT INFORMATION
  Report Type: Spontaneous
  Country: US (occurrence: US)
  Receive Date: 20210715
  Receipt Date: 20210715
  Transmission Date: 20211014
  Serious: No
  Sender: FDA-Public Use
  Company Number: None

PATIENT

DRUGS (2)
  1. DEXMEDETOMIDINE 4000MCG/100ML [Suspect]
     Active Substance: DEXMEDETOMIDINE HYDROCHLORIDE
  2. CEFAZOLIN 2GM IV [Suspect]
     Active Substance: CEFAZOLIN SODIUM

REACTIONS (1)
  - Product packaging confusion [None]
